FAERS Safety Report 8912738 (Version 1)
Quarter: 2012Q4

REPORT INFORMATION
  Report Type: Report from Study
  Country: JP (occurrence: JP)
  Receive Date: 20121116
  Receipt Date: 20121116
  Transmission Date: 20130627
  Serious: Yes (Hospitalization)
  Sender: FDA-Public Use
  Company Number: JP-PFIZER INC-2012274208

PATIENT
  Age: 48 Year
  Sex: Male
  Weight: 72 kg

DRUGS (16)
  1. CAMPTO [Suspect]
     Indication: PANCREATIC CARCINOMA
     Dosage: 180 mg/m2, cyclic: once in 2 weeks
     Route: 041
     Dates: start: 20120828
  2. ELPLAT [Suspect]
     Indication: PANCREATIC CARCINOMA
     Dosage: 85 mg/m2, cyclic: once in 2 weeks
     Route: 041
     Dates: start: 20120828
  3. LEVOFOLINATE [Suspect]
     Indication: PANCREATIC CARCINOMA
     Dosage: 200 mg/m2, cyclic: once in 2 weeks
     Route: 041
     Dates: start: 20120828
  4. 5-FU [Suspect]
     Indication: PANCREATIC CARCINOMA
     Dosage: 400 mg/m2, cyclic:once in 2weeks
     Route: 040
     Dates: start: 20120828
  5. 5-FU [Suspect]
     Dosage: 2400 mg/m2, cyclic:once in 2 weeks
     Route: 041
     Dates: start: 20120828
  6. PARIET [Concomitant]
     Dosage: UNK
     Dates: start: 20120808
  7. ALOSITOL [Concomitant]
     Dosage: UNK
     Dates: start: 20120809
  8. LOXOPROFEN [Concomitant]
     Dosage: UNK
     Dates: start: 20120827, end: 20121104
  9. GASTER [Concomitant]
     Dosage: UNK
     Dates: start: 20121029
  10. BUSCOPAN [Concomitant]
     Dosage: UNK
     Dates: start: 20121029
  11. MORPHINE HYDROCHLORIDE [Concomitant]
     Dosage: UNK
     Dates: start: 20121029
  12. OXYNORM [Concomitant]
     Dosage: UNK
     Dates: start: 20121031, end: 20121104
  13. LOPEMIN [Concomitant]
     Dosage: UNK
     Dates: start: 20121029, end: 20121104
  14. PRIMPERAN [Concomitant]
     Dosage: UNK
     Dates: start: 20121023
  15. HACHIAZULE [Concomitant]
     Dosage: UNK
     Dates: start: 20121023
  16. ROPION [Concomitant]
     Dosage: UNK
     Dates: start: 20121029

REACTIONS (1)
  - Enterocolitis [Recovered/Resolved]
